FAERS Safety Report 6461306-8 (Version None)
Quarter: 2009Q4

REPORT INFORMATION
  Report Type: 
  Country: None (occurrence: None)
  Receive Date: 20091130
  Receipt Date: 20091116
  Transmission Date: 20100525
  Serious: Yes (Congenital Anomaly)
  Sender: FDA-Public Use
  Company Number: GB-CELGENEUS-167-20484-09111563

PATIENT
  Sex: Female
  Weight: 3.45 kg

DRUGS (5)
  1. INNOHEP [Suspect]
     Route: 064
     Dates: start: 20030210, end: 20030902
  2. ASPIRIN [Suspect]
     Route: 065
     Dates: start: 20030512
  3. FERROUS SULFATE TAB [Concomitant]
     Route: 064
  4. ENTONOX [Concomitant]
     Route: 064
     Dates: start: 20030902, end: 20030902
  5. SYNTOMETRINE [Concomitant]
     Route: 064
     Dates: start: 20030902, end: 20030902

REACTIONS (2)
  - DRUG EXPOSURE DURING PREGNANCY [None]
  - HIP DYSPLASIA [None]
